FAERS Safety Report 14635962 (Version 14)
Quarter: 2024Q1

REPORT INFORMATION
  Report Type: Spontaneous
  Country: US (occurrence: US)
  Receive Date: 20180314
  Receipt Date: 20240102
  Transmission Date: 20240409
  Serious: Yes (Hospitalization, Other)
  Sender: FDA-Public Use
  Company Number: US-PFIZER INC-2018095803

PATIENT
  Age: 76 Year
  Sex: Female
  Weight: 73 kg

DRUGS (8)
  1. XELJANZ XR [Suspect]
     Active Substance: TOFACITINIB CITRATE
     Indication: Rheumatoid arthritis
     Dosage: 11 MG, 1X/DAY
     Route: 048
  2. XELJANZ XR [Suspect]
     Active Substance: TOFACITINIB CITRATE
     Dosage: 11 MG, DAILY (30^S)
     Route: 048
     Dates: start: 20170101
  3. XELJANZ XR [Suspect]
     Active Substance: TOFACITINIB CITRATE
     Dosage: 11 MG, DAILY
     Route: 048
     Dates: start: 2018
  4. XELJANZ XR [Suspect]
     Active Substance: TOFACITINIB CITRATE
     Dosage: 11 MG, 1X/DAY
     Route: 048
     Dates: start: 2019
  5. XELJANZ XR [Suspect]
     Active Substance: TOFACITINIB CITRATE
     Dosage: 11 MG, 1X/DAY
     Route: 048
     Dates: start: 202304
  6. NEXIUM [Concomitant]
     Active Substance: ESOMEPRAZOLE MAGNESIUM
     Indication: Barrett^s oesophagus
     Dosage: 40 MG, 1X/DAY
     Route: 048
  7. NEXIUM [Concomitant]
     Active Substance: ESOMEPRAZOLE MAGNESIUM
     Indication: Dyspepsia
  8. SYNTHROID [Concomitant]
     Active Substance: LEVOTHYROXINE SODIUM
     Indication: Thyroid disorder
     Dosage: 88 UG, 1X/DAY
     Route: 048

REACTIONS (30)
  - Diverticulitis [Unknown]
  - Gastric haemorrhage [Unknown]
  - Oesophagitis [Unknown]
  - Dysphagia [Unknown]
  - Pyrexia [Unknown]
  - Cataract [Unknown]
  - Gastrointestinal disorder [Recovered/Resolved]
  - Spinal operation [Unknown]
  - Arthropathy [Unknown]
  - Sensory loss [Not Recovered/Not Resolved]
  - Neuropathy peripheral [Unknown]
  - Rotator cuff syndrome [Unknown]
  - Spinal operation [Unknown]
  - Haemoglobin decreased [Unknown]
  - Drug ineffective [Unknown]
  - Product dose omission issue [Unknown]
  - Vomiting [Unknown]
  - Abdominal pain upper [Unknown]
  - Nasopharyngitis [Unknown]
  - Pharyngitis [Unknown]
  - Arthralgia [Unknown]
  - Inflammation [Unknown]
  - Hiatus hernia [Unknown]
  - Back pain [Unknown]
  - Intervertebral disc injury [Unknown]
  - Condition aggravated [Unknown]
  - Asthenia [Unknown]
  - Nodule [Unknown]
  - Arthropathy [Unknown]
  - Depression [Unknown]

NARRATIVE: CASE EVENT DATE: 20180320
